FAERS Safety Report 9422208 (Version 1)
Quarter: 2013Q3

REPORT INFORMATION
  Report Type: Spontaneous
  Country: FR (occurrence: FR)
  Receive Date: 20130726
  Receipt Date: 20130726
  Transmission Date: 20140515
  Serious: Yes (Hospitalization)
  Sender: FDA-Public Use
  Company Number: FR-JNJFOC-20130712929

PATIENT
  Age: 49 Year
  Sex: Female

DRUGS (9)
  1. REMICADE [Suspect]
     Indication: RHEUMATOID ARTHRITIS
     Route: 042
  2. REMICADE [Suspect]
     Indication: RHEUMATOID ARTHRITIS
     Dosage: THE TREATMENT WAS STARTED 0, 15, 45 DAYS AND TO ONCE EVERY 8 WEEKS
     Route: 042
     Dates: start: 20120924
  3. ARAVA [Suspect]
     Indication: RHEUMATOID ARTHRITIS
     Route: 048
  4. PLAQUENIL [Suspect]
     Indication: RHEUMATOID ARTHRITIS
     Route: 048
  5. CORTANCYL [Suspect]
     Indication: PRODUCT USED FOR UNKNOWN INDICATION
     Route: 048
  6. CORTANCYL [Suspect]
     Indication: PRODUCT USED FOR UNKNOWN INDICATION
     Route: 048
  7. DAFALGAN [Concomitant]
     Route: 048
  8. GAVISCON (SODIUM ALGINATE, SODIUM BICARBONATE) [Concomitant]
     Route: 048
  9. INEXIUM [Concomitant]
     Route: 048

REACTIONS (1)
  - Tuberculosis [Not Recovered/Not Resolved]
